FAERS Safety Report 8167072-2 (Version None)
Quarter: 2012Q1

REPORT INFORMATION
  Report Type: 
  Country: None (occurrence: None)
  Receive Date: 20120227
  Receipt Date: 20120216
  Transmission Date: 20120608
  Serious: Yes (Hospitalization)
  Sender: FDA-Public Use
  Company Number: US-JNJFOC-20120210233

PATIENT
  Sex: Male
  Weight: 79.38 kg

DRUGS (6)
  1. INFLIXIMAB, RECOMBINANT [Suspect]
     Indication: CROHN'S DISEASE
     Route: 042
  2. ACETAMINOPHEN [Concomitant]
     Indication: PREMEDICATION
  3. AZATHIOPRINE [Suspect]
     Indication: CROHN'S DISEASE
  4. ANTIHISTAMINES [Concomitant]
     Indication: PREMEDICATION
  5. INFLIXIMAB, RECOMBINANT [Suspect]
     Route: 042
     Dates: start: 20020729
  6. INFLIXIMAB, RECOMBINANT [Suspect]
     Route: 042
     Dates: start: 20110601

REACTIONS (1)
  - PNEUMONIA ASPIRATION [None]
